FAERS Safety Report 17555869 (Version 1)
Quarter: 2020Q1

REPORT INFORMATION
  Report Type: Spontaneous
  Country: GB (occurrence: GB)
  Receive Date: 20200318
  Receipt Date: 20200318
  Transmission Date: 20200409
  Serious: Yes (Hospitalization, Other)
  Sender: FDA-Public Use
  Company Number: GB-SA-2020SA063871

PATIENT
  Age: 82 Year
  Sex: Male

DRUGS (2)
  1. FOLINIC ACID [Suspect]
     Active Substance: LEUCOVORIN
  2. OXALIPLATIN. [Suspect]
     Active Substance: OXALIPLATIN

REACTIONS (2)
  - Circulatory collapse [Unknown]
  - Diarrhoea [Unknown]
